FAERS Safety Report 17160272 (Version 3)
Quarter: 2020Q3

REPORT INFORMATION
  Report Type: Spontaneous
  Country: US (occurrence: US)
  Receive Date: 20191216
  Receipt Date: 20200702
  Transmission Date: 20201102
  Serious: Yes (Other)
  Sender: FDA-Public Use
  Company Number: US-PFIZER INC-2019399805

PATIENT
  Age: 46 Year
  Sex: Female

DRUGS (3)
  1. LYRICA CR [Suspect]
     Active Substance: PREGABALIN
     Dosage: UNK, DAILY (330 I DAILY)
     Route: 048
  2. LYRICA CR [Suspect]
     Active Substance: PREGABALIN
     Indication: SCIATICA
     Dosage: 330 MG, 2X/DAY
     Route: 048
  3. CBD OIL [Concomitant]
     Active Substance: CANNABIDIOL\HERBALS
     Indication: SCIATICA
     Dosage: UNK

REACTIONS (4)
  - Epilepsy [Unknown]
  - Back pain [Unknown]
  - Product use in unapproved indication [Unknown]
  - Off label use [Unknown]
